FAERS Safety Report 5917982-9 (Version None)
Quarter: 2008Q4

REPORT INFORMATION
  Report Type: 
  Country: None (occurrence: None)
  Receive Date: 20081014
  Receipt Date: 20081003
  Transmission Date: 20090506
  Serious: No
  Sender: FDA-Public Use
  Company Number: US-ELI_LILLY_AND_COMPANY-US200808004262

PATIENT
  Age: 26 Year
  Sex: Female

DRUGS (1)
  1. HUMATROPE [Suspect]
     Dosage: UNK, UNK
     Dates: start: 19920101, end: 19980101

REACTIONS (1)
  - NO ADVERSE EVENT [None]
